FAERS Safety Report 25947557 (Version 1)
Quarter: 2025Q4

REPORT INFORMATION
  Report Type: Spontaneous
  Country: US (occurrence: None)
  Receive Date: 20251021
  Receipt Date: 20251021
  Transmission Date: 20260117
  Serious: Yes (Other)
  Sender: FDA-CTU
  Company Number: None

PATIENT
  Age: 78 Year
  Sex: Female

DRUGS (8)
  1. LENALIDOMIDE [Suspect]
     Active Substance: LENALIDOMIDE
     Indication: Plasma cell myeloma
     Dosage: FREQUENCY : DAILY;?
     Route: 048
     Dates: start: 20250225
  2. GABAPENTIN [Concomitant]
     Active Substance: GABAPENTIN
  3. KLOR-CON M10 TAB 10MEQ ER [Concomitant]
  4. KP VITAMIN D [Concomitant]
  5. LOMOTIL TAB 2.5MG [Concomitant]
  6. LOSARTAN POTASSIUM [Concomitant]
     Active Substance: LOSARTAN POTASSIUM
  7. METFORMIN TAB 1000MG [Concomitant]
  8. OXYCOD/APAP TAB 5-325MG [Concomitant]

REACTIONS (1)
  - Plasma cell myeloma [None]

NARRATIVE: CASE EVENT DATE: 20251001
